FAERS Safety Report 6753246-1 (Version None)
Quarter: 2010Q2

REPORT INFORMATION
  Report Type: 
  Country: None (occurrence: None)
  Receive Date: 20100603
  Receipt Date: 20100520
  Transmission Date: 20101027
  Serious: Yes (Life-Threatening)
  Sender: FDA-Public Use
  Company Number: GB-RANBAXY-2010RR-34141

PATIENT
  Age: 27 Year
  Sex: Female

DRUGS (2)
  1. AMPICILLIN SODIUM/SULBACTAM SODIUM [Suspect]
     Indication: URINARY TRACT INFECTION
     Dosage: 1.2 G, UNK
     Dates: start: 20100511, end: 20100511
  2. ASPIRIN [Concomitant]
     Indication: FACTOR V LEIDEN MUTATION
     Dosage: 75 MG, UNK
     Route: 048
     Dates: start: 20100203

REACTIONS (3)
  - HYPOTENSION [None]
  - TACHYCARDIA [None]
  - WHEEZING [None]
